FAERS Safety Report 15936602 (Version 1)
Quarter: 2019Q1

REPORT INFORMATION
  Report Type: Spontaneous
  Country: US (occurrence: US)
  Receive Date: 20190207
  Receipt Date: 20190207
  Transmission Date: 20190417
  Serious: Yes (Disabling)
  Sender: FDA-Public Use
  Company Number: None

PATIENT
  Age: 71 Year
  Sex: Female
  Weight: 65.7 kg

DRUGS (1)
  1. PRALUENT [Suspect]
     Active Substance: ALIROCUMAB
     Indication: LOW DENSITY LIPOPROTEIN INCREASED
     Dosage: ?          QUANTITY:1 INJECTION(S);OTHER FREQUENCY:ONCE EVERY TWO WEE;?
     Route: 058
     Dates: start: 20190103, end: 20190103

REACTIONS (6)
  - Balance disorder [None]
  - Lymphadenopathy [None]
  - Infection [None]
  - Paranasal sinus discomfort [None]
  - Ear disorder [None]
  - Impaired driving ability [None]
